FAERS Safety Report 7425150-7 (Version None)
Quarter: 2011Q2

REPORT INFORMATION
  Report Type: 
  Country: None (occurrence: None)
  Receive Date: 20110412
  Receipt Date: 20110329
  Transmission Date: 20111010
  Serious: Yes (Hospitalization)
  Sender: FDA-Public Use
  Company Number: 1000019948

PATIENT
  Age: 80 Year
  Sex: Male

DRUGS (1)
  1. ROFLUMILAST (ROFLUYMILAST) (500 MICROGRAM, TABLETS) [Suspect]
     Indication: CHRONIC OBSTRUCTIVE PULMONARY DISEASE
     Dosage: 500 MCG (500 MCG, 1 IN 1 D), ORAL
     Route: 048
     Dates: start: 20110224, end: 20110301

REACTIONS (4)
  - RASH MACULO-PAPULAR [None]
  - MALAISE [None]
  - DRUG INEFFECTIVE [None]
  - SKIN EXFOLIATION [None]
